FAERS Safety Report 6524093-0 (Version None)
Quarter: 2009Q4

REPORT INFORMATION
  Report Type: 
  Country: None (occurrence: None)
  Receive Date: 20091230
  Receipt Date: 20091230
  Transmission Date: 20100525
  Serious: Yes (Disabling)
  Sender: FDA-Public Use
  Company Number: None

PATIENT
  Age: 72 Year
  Sex: Female
  Weight: 62.5964 kg

DRUGS (1)
  1. LEVAQUIN [Suspect]
     Indication: URINARY TRACT INFECTION
     Dosage: 1 TABLET EACH DAY 5 DAYS
     Dates: start: 20090209

REACTIONS (7)
  - ABNORMAL DREAMS [None]
  - CONTUSION [None]
  - DEPRESSION [None]
  - NIGHTMARE [None]
  - SWELLING [None]
  - TENDON RUPTURE [None]
  - VISUAL IMPAIRMENT [None]
